FAERS Safety Report 9471338 (Version 4)
Quarter: 2013Q4

REPORT INFORMATION
  Report Type: Spontaneous
  Country: JP (occurrence: JP)
  Receive Date: 20130822
  Receipt Date: 20131209
  Transmission Date: 20140711
  Serious: Yes (Hospitalization)
  Sender: FDA-Public Use
  Company Number: JP-UCBSA-095147

PATIENT
  Age: 49 Year
  Sex: Male

DRUGS (15)
  1. E KEPPRA [Suspect]
     Indication: EPILEPSY
     Dosage: STRENGTH: 500 MG
     Route: 048
     Dates: start: 20130705, end: 20130804
  2. METHOTREXATE [Suspect]
     Dosage: DAILY DOSE: 6500 MG
     Route: 042
     Dates: start: 20130707, end: 20130707
  3. DEPAS [Concomitant]
     Route: 048
     Dates: start: 20130625
  4. MAGLAX [Concomitant]
     Route: 048
     Dates: start: 20130625, end: 20130709
  5. TAKEPRON [Concomitant]
     Route: 048
     Dates: start: 20130625
  6. PURSENNID [Concomitant]
     Route: 048
     Dates: start: 20130625
  7. ROZEREM [Concomitant]
     Route: 048
     Dates: start: 20130625
  8. LORAMET [Concomitant]
     Route: 048
     Dates: start: 20130704
  9. CRAVIT [Concomitant]
     Route: 048
     Dates: start: 20130705, end: 20130709
  10. DIFLUCAN [Concomitant]
     Route: 048
     Dates: start: 20130705, end: 20130715
  11. RITUXAN [Concomitant]
     Route: 042
     Dates: start: 20130705
  12. CYCLOCIDE [Concomitant]
     Route: 042
     Dates: start: 20130708, end: 20130709
  13. ALOXI [Concomitant]
     Route: 042
     Dates: start: 20130707
  14. LEUCOVORIN [Concomitant]
     Dates: end: 20130723
  15. PRIDOL [Concomitant]
     Dosage: DAILY DOSE: 80 MG
     Route: 042
     Dates: start: 20130707, end: 20130709

REACTIONS (6)
  - Renal disorder [Recovered/Resolved]
  - Oral disorder [Recovered/Resolved]
  - Stomatitis [Recovering/Resolving]
  - Pyrexia [Recovered/Resolved]
  - Drug level increased [Recovered/Resolved]
  - White blood cell count decreased [Recovered/Resolved]
